FAERS Safety Report 22157305 (Version 1)
Quarter: 2023Q1

REPORT INFORMATION
  Report Type: Spontaneous
  Country: US (occurrence: None)
  Receive Date: 20230329
  Receipt Date: 20230329
  Transmission Date: 20230417
  Serious: No
  Sender: FDA-Public Use
  Company Number: None

PATIENT
  Age: 69 Year
  Sex: Female
  Weight: 84.23 kg

DRUGS (14)
  1. VERZENIO [Suspect]
     Active Substance: ABEMACICLIB
     Indication: Breast cancer
     Dosage: OTHER FREQUENCY : Q12HOURS;?
     Route: 048
  2. ATORVASTATIN [Concomitant]
  3. CITALOPRAM [Concomitant]
  4. GABAPENTIN [Concomitant]
  5. IBUPROFEN [Concomitant]
  6. IRON [Concomitant]
  7. JARDIANCE [Concomitant]
  8. LEVEMIR [Concomitant]
  9. LEVOTHYROXINE [Concomitant]
  10. NOVOLOG [Concomitant]
  11. ONDANSETRON [Concomitant]
  12. PROCHLORPERAZINE [Concomitant]
  13. TRADJENTA [Concomitant]
  14. VITAMIN D3 [Concomitant]

REACTIONS (2)
  - Full blood count decreased [None]
  - Therapy interrupted [None]
